FAERS Safety Report 16329842 (Version 3)
Quarter: 2019Q2

REPORT INFORMATION
  Report Type: Report from Study
  Country: FR (occurrence: FR)
  Receive Date: 20190520
  Receipt Date: 20190612
  Transmission Date: 20190711
  Serious: Yes (Hospitalization)
  Sender: FDA-Public Use
  Company Number: FR-ROCHE-2320281

PATIENT
  Age: 60 Year
  Sex: Male

DRUGS (14)
  1. ELISOR [Concomitant]
     Active Substance: PRAVASTATIN SODIUM
  2. FAZOL [ISOCONAZOLE NITRATE] [Concomitant]
  3. AVODART [Concomitant]
     Active Substance: DUTASTERIDE
     Route: 048
  4. UROREC [Concomitant]
     Active Substance: SILODOSIN
     Route: 048
  5. AVLOCARDYL [PROPRANOLOL] [Concomitant]
     Active Substance: PROPRANOLOL HYDROCHLORIDE
  6. RAMIPRIL. [Concomitant]
     Active Substance: RAMIPRIL
     Route: 048
     Dates: start: 20190509
  7. COBIMETINIB. [Suspect]
     Active Substance: COBIMETINIB
     Indication: METASTASES TO CENTRAL NERVOUS SYSTEM
     Dosage: (THREE TABLETS OF 20 MG EACH) ON DAYS 1-21 OF EACH 28-DAY CYCLE?DATE OF MOST RECENT DOSE PRIOR TO EV
     Route: 048
     Dates: start: 20190411
  8. CEFIXIME. [Concomitant]
     Active Substance: CEFIXIME
     Route: 048
     Dates: end: 20190516
  9. ESOMEPRAZOLE. [Concomitant]
     Active Substance: ESOMEPRAZOLE MAGNESIUM
     Route: 048
     Dates: start: 20190425, end: 20190516
  10. BISOPROLOL [Concomitant]
     Active Substance: BISOPROLOL
     Route: 048
     Dates: start: 20190511
  11. TIORFAN [Concomitant]
     Active Substance: RACECADOTRIL
     Route: 048
  12. TRIFLUCAN [Concomitant]
     Active Substance: FLUCONAZOLE
     Route: 048
     Dates: start: 20190425, end: 20190509
  13. ATEZOLIZUMAB. [Suspect]
     Active Substance: ATEZOLIZUMAB
     Indication: METASTASES TO CENTRAL NERVOUS SYSTEM
     Dosage: DAYS 1 AND 15 OF EACH 28-DAY CYCLE?DATE OF MOST RECENT DOSE PRIOR TO EVENT ONSET: 11/APR/2019 AT 12
     Route: 042
     Dates: start: 20190411
  14. BACTRIM [Concomitant]
     Active Substance: SULFAMETHOXAZOLE\TRIMETHOPRIM
     Route: 048
     Dates: start: 20190411, end: 201904

REACTIONS (2)
  - Myocarditis [Recovered/Resolved]
  - Ejection fraction decreased [Recovered/Resolved]

NARRATIVE: CASE EVENT DATE: 20190507
